FAERS Safety Report 18395261 (Version 1)
Quarter: 2020Q4

REPORT INFORMATION
  Report Type: Spontaneous
  Country: US (occurrence: US)
  Receive Date: 20201017
  Receipt Date: 20201017
  Transmission Date: 20210114
  Serious: Yes (Hospitalization, Other)
  Sender: FDA-Public Use
  Company Number: US-ALVOGEN-2020-ALVOGEN-114924

PATIENT
  Age: 35 Year
  Sex: Male

DRUGS (4)
  1. KETAMINE [Suspect]
     Active Substance: KETAMINE
     Indication: NEURALGIA
  2. GABAPENTIN. [Suspect]
     Active Substance: GABAPENTIN
     Indication: NEURALGIA
  3. CLONIDINE. [Suspect]
     Active Substance: CLONIDINE
     Indication: NEURALGIA
  4. LIDOCAINE. [Suspect]
     Active Substance: LIDOCAINE
     Indication: NEURALGIA

REACTIONS (4)
  - Hypotension [Unknown]
  - Confusional state [Unknown]
  - Bradycardia [Unknown]
  - Systemic toxicity [Unknown]
